FAERS Safety Report 12514556 (Version 1)
Quarter: 2016Q2

REPORT INFORMATION
  Report Type: Spontaneous
  Country: US (occurrence: None)
  Receive Date: 20160629
  Receipt Date: 20160629
  Transmission Date: 20160815
  Serious: No
  Sender: FDA-Public Use
  Company Number: None

PATIENT
  Age: 41 Year
  Sex: Male

DRUGS (3)
  1. QUETIAPINE. [Suspect]
     Active Substance: QUETIAPINE
     Route: 048
     Dates: start: 20150519, end: 20150713
  2. BENZTROPINE [Concomitant]
     Active Substance: BENZTROPINE
  3. PALIPERIDONE. [Suspect]
     Active Substance: PALIPERIDONE
     Route: 048
     Dates: start: 20150707, end: 20150714

REACTIONS (1)
  - Neuroleptic malignant syndrome [None]

NARRATIVE: CASE EVENT DATE: 20150716
